FAERS Safety Report 19358806 (Version 1)
Quarter: 2021Q2

REPORT INFORMATION
  Report Type: Spontaneous
  Country: NL (occurrence: NL)
  Receive Date: 20210602
  Receipt Date: 20210602
  Transmission Date: 20210717
  Serious: Yes (Other)
  Sender: FDA-Public Use
  Company Number: NL-MYLANLABS-2021M1031709

PATIENT
  Sex: Male
  Weight: 80 kg

DRUGS (7)
  1. OMEPRAZOLE. [Suspect]
     Active Substance: OMEPRAZOLE
     Indication: DUODENAL ULCER
     Dosage: 1 DOSAGE FORM (ONE TIME 1 PIECE)
     Dates: start: 202102, end: 20210208
  2. PANTOPRAZOLE [Suspect]
     Active Substance: PANTOPRAZOLE
     Indication: DUODENAL ULCER
     Dosage: 1 DOSAGE FORM, QD (1X PER DAY 1 PIECE (AFTER STOPPING PANCLAMOX)
     Dates: start: 20210209, end: 2021
  3. FERROFUMARAAT [Concomitant]
     Active Substance: FERROUS FUMARATE
     Dosage: TABLET, 200 MG (MILLIGRAM)
  4. RABEPRAZOLE [Suspect]
     Active Substance: RABEPRAZOLE
     Dosage: 2 DOSAGE FORM, QD (THEN 2 TABLETS 1X A DAY)
     Dates: end: 20210303
  5. PANCLAMOX [Suspect]
     Active Substance: AMOXICILLIN\CLARITHROMYCIN\PANTOPRAZOLE
     Indication: DUODENAL ULCER
     Dosage: 3 DOSAGE FORM, BID (2X DAILY 3 TABLETS)
     Dates: start: 20210209, end: 2021
  6. METOPROLOL. [Concomitant]
     Active Substance: METOPROLOL
     Dosage: MODIFIED RELEASE TABLET, 50 MG (MILLIGRAMS)
  7. RABEPRAZOLE [Suspect]
     Active Substance: RABEPRAZOLE
     Indication: DUODENAL ULCER
     Dosage: 1 DOSAGE FORM, QD (START 1X A DAY 1 TABLET)
     Dates: start: 20210209

REACTIONS (3)
  - Hallucination [Recovered/Resolved]
  - Depressed mood [Recovering/Resolving]
  - Cerebral disorder [Recovered/Resolved]
